FAERS Safety Report 18624334 (Version 3)
Quarter: 2021Q1

REPORT INFORMATION
  Report Type: Report from Study
  Country: IL (occurrence: IL)
  Receive Date: 20201216
  Receipt Date: 20210326
  Transmission Date: 20210419
  Serious: Yes (Other)
  Sender: FDA-Public Use
  Company Number: NVSC2020IL329642

PATIENT
  Age: 71 Year
  Sex: Female

DRUGS (3)
  1. SANDOSTATIN LAR DEPOT [Suspect]
     Active Substance: OCTREOTIDE ACETATE
  2. SANDOSTATIN LAR DEPOT [Suspect]
     Active Substance: OCTREOTIDE ACETATE
  3. SANDOSTATIN LAR DEPOT [Suspect]
     Active Substance: OCTREOTIDE ACETATE
     Indication: NEUROENDOCRINE TUMOUR
     Dosage: 30 MG, Q4W
     Route: 030
     Dates: start: 20201110

REACTIONS (6)
  - Injury [Unknown]
  - Malignant neoplasm progression [Not Recovered/Not Resolved]
  - Product storage error [Unknown]
  - Epistaxis [Unknown]
  - Neuroendocrine tumour [Not Recovered/Not Resolved]
  - Lip haemorrhage [Unknown]

NARRATIVE: CASE EVENT DATE: 20201207
